FAERS Safety Report 6088774-8 (Version None)
Quarter: 2009Q1

REPORT INFORMATION
  Report Type: 
  Country: None (occurrence: None)
  Receive Date: 20090224
  Receipt Date: 20081014
  Transmission Date: 20090719
  Serious: No
  Sender: FDA-Public Use
  Company Number: US-BAYER-200832978NA

PATIENT
  Sex: Male

DRUGS (1)
  1. ULTRAVIST 300 [Suspect]

REACTIONS (2)
  - HYPOAESTHESIA [None]
  - VOMITING [None]
